FAERS Safety Report 15007714 (Version 2)
Quarter: 2018Q3

REPORT INFORMATION
  Report Type: Report from Study
  Country: US (occurrence: US)
  Receive Date: 20180613
  Receipt Date: 20180807
  Transmission Date: 20181010
  Serious: Yes (Hospitalization)
  Sender: FDA-Public Use
  Company Number: US-ASTRAZENECA-2018SE68870

PATIENT
  Age: 806 Month
  Sex: Male
  Weight: 88.5 kg

DRUGS (5)
  1. LOVENOX [Concomitant]
     Active Substance: ENOXAPARIN SODIUM
  2. TAGRISSO [Suspect]
     Active Substance: OSIMERTINIB
     Indication: NON-SMALL CELL LUNG CANCER
     Route: 048
     Dates: start: 20180603, end: 20180604
  3. TAGRISSO [Suspect]
     Active Substance: OSIMERTINIB
     Indication: NON-SMALL CELL LUNG CANCER
     Route: 048
     Dates: start: 201805, end: 20180602
  4. TAGRISSO [Suspect]
     Active Substance: OSIMERTINIB
     Indication: NON-SMALL CELL LUNG CANCER
     Route: 048
     Dates: start: 20180508
  5. TAGRISSO [Suspect]
     Active Substance: OSIMERTINIB
     Indication: NON-SMALL CELL LUNG CANCER
     Route: 048
     Dates: start: 201805

REACTIONS (14)
  - Heart rate increased [Unknown]
  - Diarrhoea [Unknown]
  - Sinusitis [Unknown]
  - Constipation [Unknown]
  - Weight decreased [Unknown]
  - Cough [Unknown]
  - Thrombosis [Unknown]
  - Pulmonary thrombosis [Unknown]
  - Oxygen saturation decreased [Unknown]
  - Fatigue [Unknown]
  - Eye pain [Unknown]
  - Dyspnoea [Unknown]
  - Productive cough [Unknown]
  - Intentional product misuse [Unknown]

NARRATIVE: CASE EVENT DATE: 201805
